FAERS Safety Report 10164411 (Version 1)
Quarter: 2014Q2

REPORT INFORMATION
  Report Type: Spontaneous
  Country: US (occurrence: US)
  Receive Date: 20140510
  Receipt Date: 20140510
  Transmission Date: 20141212
  Serious: No
  Sender: FDA-Public Use
  Company Number: US-BRISTOL-MYERS SQUIBB COMPANY-20147237

PATIENT
  Age: 68 Year
  Sex: Female
  Weight: 106.57 kg

DRUGS (11)
  1. BYETTA PEN DISPOSABLE [Suspect]
     Indication: TYPE 2 DIABETES MELLITUS
     Route: 058
  2. METFORMIN HCL [Suspect]
  3. ACTOS [Suspect]
  4. GLUCOTROL [Suspect]
  5. TOPROL [Concomitant]
  6. HYZAAR [Concomitant]
  7. ZOCOR [Concomitant]
  8. LOPID [Concomitant]
  9. IBUPROFEN [Concomitant]
  10. ASPIRIN [Concomitant]
  11. LEVOTHYROXINE [Concomitant]

REACTIONS (5)
  - Blood glucose decreased [Unknown]
  - Weight decreased [Unknown]
  - Drug ineffective [Unknown]
  - Drug administration error [Unknown]
  - Product quality issue [Unknown]
